FAERS Safety Report 21285350 (Version 1)
Quarter: 2022Q3

REPORT INFORMATION
  Report Type: Spontaneous
  Country: US (occurrence: None)
  Receive Date: 20220901
  Receipt Date: 20220901
  Transmission Date: 20221027
  Serious: No
  Sender: FDA-Public Use
  Company Number: None

PATIENT

DRUGS (2)
  1. HYDROMORPHONE HCL [Suspect]
     Active Substance: HYDROMORPHONE HYDROCHLORIDE
  2. NALOXONE HCL [Suspect]
     Active Substance: NALOXONE HYDROCHLORIDE

REACTIONS (4)
  - Transcription medication error [None]
  - Drug monitoring procedure not performed [None]
  - Incorrect route of product administration [None]
  - Loss of consciousness [None]
